FAERS Safety Report 5734751-3 (Version None)
Quarter: 2008Q2

REPORT INFORMATION
  Report Type: 
  Country: None (occurrence: None)
  Receive Date: 20080508
  Receipt Date: 20080428
  Transmission Date: 20081010
  Serious: Yes (Other)
  Sender: FDA-Public Use
  Company Number: 232956J08USA

PATIENT
  Age: 46 Year
  Sex: Male
  Weight: 93.441 kg

DRUGS (10)
  1. REBIF [Suspect]
     Indication: MULTIPLE SCLEROSIS
     Dosage: SEE IMAGE
     Route: 058
     Dates: start: 20030716, end: 20080201
  2. REBIF [Suspect]
     Indication: MULTIPLE SCLEROSIS
     Dosage: SEE IMAGE
     Route: 058
     Dates: start: 20080101, end: 20080301
  3. REBIF [Suspect]
     Indication: MULTIPLE SCLEROSIS
     Dosage: SEE IMAGE
     Route: 058
     Dates: start: 20080301
  4. MULTIVITAMIN [Concomitant]
  5. ACTOS [Concomitant]
  6. LIPITOR [Concomitant]
  7. GLIMEPIRIDE [Concomitant]
  8. METOPROLOL TARTRATE [Concomitant]
  9. LOTREL [Concomitant]
  10. ACYCLOVIR [Concomitant]

REACTIONS (8)
  - DRUG DOSE OMISSION [None]
  - EAR INFECTION [None]
  - ERYTHEMA [None]
  - MULTIPLE MYELOMA [None]
  - MYOCARDIAL INFARCTION [None]
  - PRURITUS [None]
  - RASH [None]
  - STEM CELL TRANSPLANT [None]
